FAERS Safety Report 9712615 (Version 1)
Quarter: 2013Q4

REPORT INFORMATION
  Report Type: Spontaneous
  Country: US (occurrence: US)
  Receive Date: 20131126
  Receipt Date: 20131126
  Transmission Date: 20140711
  Serious: Yes (Hospitalization)
  Sender: FDA-Public Use
  Company Number: US-BRISTOL-MYERS SQUIBB COMPANY-19205228

PATIENT
  Sex: Male

DRUGS (1)
  1. BYDUREON [Suspect]
     Dates: start: 2013

REACTIONS (3)
  - Renal failure acute [Unknown]
  - Abdominal discomfort [Unknown]
  - Dehydration [Recovered/Resolved]
